FAERS Safety Report 25750229 (Version 2)
Quarter: 2025Q3

REPORT INFORMATION
  Report Type: Spontaneous
  Country: JP (occurrence: JP)
  Receive Date: 20250902
  Receipt Date: 20250922
  Transmission Date: 20251021
  Serious: Yes (Death, Life-Threatening, Hospitalization)
  Sender: MYLAN
  Company Number: JP-MYE-2025M1073051AA

PATIENT
  Age: 63 Year
  Sex: Female

DRUGS (52)
  1. MYCOPHENOLATE MOFETIL [Suspect]
     Active Substance: MYCOPHENOLATE MOFETIL
     Indication: Lung disorder
  2. MYCOPHENOLATE MOFETIL [Suspect]
     Active Substance: MYCOPHENOLATE MOFETIL
     Route: 065
  3. MYCOPHENOLATE MOFETIL [Suspect]
     Active Substance: MYCOPHENOLATE MOFETIL
     Route: 065
  4. MYCOPHENOLATE MOFETIL [Suspect]
     Active Substance: MYCOPHENOLATE MOFETIL
  5. PREDNISOLONE [Suspect]
     Active Substance: PREDNISOLONE
     Indication: Organising pneumonia
  6. PREDNISOLONE [Suspect]
     Active Substance: PREDNISOLONE
     Route: 065
  7. PREDNISOLONE [Suspect]
     Active Substance: PREDNISOLONE
     Route: 065
  8. PREDNISOLONE [Suspect]
     Active Substance: PREDNISOLONE
  9. TACROLIMUS [Suspect]
     Active Substance: TACROLIMUS
     Indication: Prophylaxis against graft versus host disease
  10. TACROLIMUS [Suspect]
     Active Substance: TACROLIMUS
     Route: 065
  11. TACROLIMUS [Suspect]
     Active Substance: TACROLIMUS
     Route: 065
  12. TACROLIMUS [Suspect]
     Active Substance: TACROLIMUS
  13. FLUDARABINE [Suspect]
     Active Substance: FLUDARABINE PHOSPHATE
     Indication: Bone marrow conditioning regimen
  14. FLUDARABINE [Suspect]
     Active Substance: FLUDARABINE PHOSPHATE
     Route: 065
  15. FLUDARABINE [Suspect]
     Active Substance: FLUDARABINE PHOSPHATE
     Route: 065
  16. FLUDARABINE [Suspect]
     Active Substance: FLUDARABINE PHOSPHATE
  17. MELPHALAN [Suspect]
     Active Substance: MELPHALAN
     Indication: Bone marrow conditioning regimen
  18. MELPHALAN [Suspect]
     Active Substance: MELPHALAN
     Route: 065
  19. MELPHALAN [Suspect]
     Active Substance: MELPHALAN
     Route: 065
  20. MELPHALAN [Suspect]
     Active Substance: MELPHALAN
  21. METHOTREXATE [Suspect]
     Active Substance: METHOTREXATE
     Indication: Prophylaxis against graft versus host disease
  22. METHOTREXATE [Suspect]
     Active Substance: METHOTREXATE
     Route: 065
  23. METHOTREXATE [Suspect]
     Active Substance: METHOTREXATE
     Route: 065
  24. METHOTREXATE [Suspect]
     Active Substance: METHOTREXATE
  25. METHYLPREDNISOLONE [Suspect]
     Active Substance: METHYLPREDNISOLONE
     Indication: Lung disorder
  26. METHYLPREDNISOLONE [Suspect]
     Active Substance: METHYLPREDNISOLONE
     Route: 065
  27. METHYLPREDNISOLONE [Suspect]
     Active Substance: METHYLPREDNISOLONE
     Route: 065
  28. METHYLPREDNISOLONE [Suspect]
     Active Substance: METHYLPREDNISOLONE
  29. RUXOLITINIB [Suspect]
     Active Substance: RUXOLITINIB
     Indication: Lung disorder
  30. RUXOLITINIB [Suspect]
     Active Substance: RUXOLITINIB
     Route: 065
  31. RUXOLITINIB [Suspect]
     Active Substance: RUXOLITINIB
     Route: 065
  32. RUXOLITINIB [Suspect]
     Active Substance: RUXOLITINIB
  33. THYMOCYTE IMMUNE GLOBULIN NOS [Suspect]
     Active Substance: THYMOCYTE IMMUNE GLOBULIN NOS
     Indication: Product used for unknown indication
  34. THYMOCYTE IMMUNE GLOBULIN NOS [Suspect]
     Active Substance: THYMOCYTE IMMUNE GLOBULIN NOS
     Route: 065
  35. THYMOCYTE IMMUNE GLOBULIN NOS [Suspect]
     Active Substance: THYMOCYTE IMMUNE GLOBULIN NOS
     Route: 065
  36. THYMOCYTE IMMUNE GLOBULIN NOS [Suspect]
     Active Substance: THYMOCYTE IMMUNE GLOBULIN NOS
  37. AZACITIDINE [Concomitant]
     Active Substance: AZACITIDINE
     Indication: Myelodysplastic syndrome
  38. AZACITIDINE [Concomitant]
     Active Substance: AZACITIDINE
     Route: 065
  39. AZACITIDINE [Concomitant]
     Active Substance: AZACITIDINE
     Route: 065
  40. AZACITIDINE [Concomitant]
     Active Substance: AZACITIDINE
  41. VENETOCLAX [Concomitant]
     Active Substance: VENETOCLAX
     Indication: Myelodysplastic syndrome
  42. VENETOCLAX [Concomitant]
     Active Substance: VENETOCLAX
     Route: 065
  43. VENETOCLAX [Concomitant]
     Active Substance: VENETOCLAX
     Route: 065
  44. VENETOCLAX [Concomitant]
     Active Substance: VENETOCLAX
  45. IDARUBICIN [Concomitant]
     Active Substance: IDARUBICIN
     Indication: Myelodysplastic syndrome
  46. IDARUBICIN [Concomitant]
     Active Substance: IDARUBICIN
     Route: 065
  47. IDARUBICIN [Concomitant]
     Active Substance: IDARUBICIN
     Route: 065
  48. IDARUBICIN [Concomitant]
     Active Substance: IDARUBICIN
  49. CYTARABINE [Concomitant]
     Active Substance: CYTARABINE
     Indication: Myelodysplastic syndrome
  50. CYTARABINE [Concomitant]
     Active Substance: CYTARABINE
     Route: 065
  51. CYTARABINE [Concomitant]
     Active Substance: CYTARABINE
     Route: 065
  52. CYTARABINE [Concomitant]
     Active Substance: CYTARABINE

REACTIONS (5)
  - Encephalitis enteroviral [Fatal]
  - Respiratory failure [Unknown]
  - Paralysis [Unknown]
  - Cerebral disorder [Unknown]
  - Off label use [Unknown]
